FAERS Safety Report 5146961-7 (Version None)
Quarter: 2006Q4

REPORT INFORMATION
  Report Type: 
  Country: None (occurrence: None)
  Receive Date: 20061109
  Receipt Date: 20050311
  Transmission Date: 20070319
  Serious: Yes (Hospitalization)
  Sender: FDA-Public Use
  Company Number: US-SANOFI-SYNTHELABO-D01200501917

PATIENT
  Sex: Male
  Weight: 73.4 kg

DRUGS (5)
  1. HYDROCHLOROTHIAZIDE [Concomitant]
     Dosage: 25 MG
  2. ATENOLOL [Concomitant]
     Dosage: 25 MG
  3. FLUOROURACIL [Suspect]
     Dosage: 300 MG/M2 IV BOLUS FOLLOWED BY 500 MG/M2 IV CONTINUOUS INFUSION, D1-D2, Q2W
     Route: 042
     Dates: start: 20050221, end: 20050221
  4. LEUCOVORIN CALCIUM [Suspect]
     Route: 042
     Dates: start: 20050221, end: 20050221
  5. OXALIPLATIN [Suspect]
     Indication: GASTROINTESTINAL CANCER METASTATIC
     Route: 042
     Dates: start: 20050221, end: 20050221

REACTIONS (5)
  - ATRIAL FIBRILLATION [None]
  - HEART RATE INCREASED [None]
  - NEUTROPENIC INFECTION [None]
  - PNEUMATOSIS [None]
  - PNEUMATOSIS INTESTINALIS [None]
